FAERS Safety Report 8814544 (Version 1)
Quarter: 2012Q4

REPORT INFORMATION
  Report Type: Spontaneous
  Country: US (occurrence: None)
  Receive Date: 20120925
  Receipt Date: 20120925
  Transmission Date: 20130627
  Serious: Yes (Death)
  Sender: FDA-Public Use
  Company Number: DKLU1084661

PATIENT
  Age: 48 Year
  Sex: Male

DRUGS (5)
  1. ONFI (CLOBAZAM) (CLOBAZAM) (10 MG, TABLET) [Suspect]
     Indication: LENNOX-GASTAUT SYNDROME
     Dosage: 10 mg milligram(s), 2 in 1 D, Oral
     Route: 048
     Dates: start: 20120627
  2. FELBAMATE (FELBAMATE) [Concomitant]
  3. CLONAZEPAM (CLONAZEPAM) [Concomitant]
  4. BANZEL (RUFINAMIDE) [Concomitant]
  5. LORAZEPAM (LORAZEPAM) [Concomitant]

REACTIONS (1)
  - Death [None]
